FAERS Safety Report 14975839 (Version 1)
Quarter: 2018Q3

REPORT INFORMATION
  Report Type: Spontaneous
  Country: US (occurrence: US)
  Receive Date: 20180605
  Receipt Date: 20180605
  Transmission Date: 20181010
  Serious: No
  Sender: FDA-Public Use
  Company Number: US-ROCHE-2018430

PATIENT
  Age: 57 Year
  Sex: Female
  Weight: 95.34 kg

DRUGS (3)
  1. ACTEMRA [Suspect]
     Active Substance: TOCILIZUMAB
     Dosage: ONGOING: YES
     Route: 042
     Dates: start: 201702
  2. N?ACETYL CYSTEINE [Suspect]
     Active Substance: ACETYLCYSTEINE
     Indication: HEPATIC ENZYME INCREASED
     Route: 048
     Dates: start: 201612
  3. ACTEMRA [Suspect]
     Active Substance: TOCILIZUMAB
     Indication: PRODUCT USED FOR UNKNOWN INDICATION
     Dosage: ONGOING: YES
     Route: 042
     Dates: start: 201610, end: 201612

REACTIONS (4)
  - Aspartate aminotransferase increased [Not Recovered/Not Resolved]
  - Liver disorder [Unknown]
  - Product quality issue [None]
  - Alanine aminotransferase increased [Not Recovered/Not Resolved]

NARRATIVE: CASE EVENT DATE: 201709
